FAERS Safety Report 6321740-3 (Version None)
Quarter: 2009Q3

REPORT INFORMATION
  Report Type: 
  Country: None (occurrence: None)
  Receive Date: 20090821
  Receipt Date: 20090821
  Transmission Date: 20100115
  Serious: Yes (Other)
  Sender: FDA-Public Use
  Company Number: None

PATIENT
  Sex: Female
  Weight: 85.2762 kg

DRUGS (1)
  1. LEVAQUIN [Suspect]
     Indication: HELICOBACTER INFECTION
     Dosage: 500 MG ONES A DAY BY MOUTH
     Route: 048
     Dates: start: 20090730, end: 20090802

REACTIONS (5)
  - BLOOD PRESSURE DIASTOLIC INCREASED [None]
  - CHEST PAIN [None]
  - HEAD DISCOMFORT [None]
  - HELICOBACTER INFECTION [None]
  - MIDDLE INSOMNIA [None]
